FAERS Safety Report 7830888-3 (Version None)
Quarter: 2011Q4

REPORT INFORMATION
  Report Type: 
  Country: None (occurrence: None)
  Receive Date: 20111021
  Receipt Date: 20111017
  Transmission Date: 20120403
  Serious: No
  Sender: FDA-Public Use
  Company Number: US-PFIZER INC-2011251387

PATIENT
  Sex: Female
  Weight: 120 kg

DRUGS (6)
  1. ERYTHROMYCIN [Suspect]
     Dosage: UNK
  2. SUMATRIPTAN SUCCINATE [Suspect]
     Dosage: UNK
  3. SIMVASTATIN [Suspect]
     Dosage: UNK
  4. TETANUS TOXOID [Suspect]
     Dosage: UNK
  5. FLUOXETINE HYDROCHLORIDE [Suspect]
     Dosage: UNK
  6. ZOLPIDEM TARTRATE [Suspect]
     Dosage: UNK

REACTIONS (1)
  - DRUG HYPERSENSITIVITY [None]
